FAERS Safety Report 5680463-4 (Version None)
Quarter: 2008Q1

REPORT INFORMATION
  Report Type: 
  Country: None (occurrence: None)
  Receive Date: 20080326
  Receipt Date: 20080314
  Transmission Date: 20080703
  Serious: Yes (Death, Hospitalization)
  Sender: FDA-Public Use
  Company Number: B0509198A

PATIENT
  Age: 82 Year
  Sex: Male

DRUGS (8)
  1. AUGMENTIN '125' [Suspect]
     Indication: DRUG USE FOR UNKNOWN INDICATION
     Dosage: 6G PER DAY
     Route: 048
     Dates: start: 20080112, end: 20080115
  2. GENTAMICIN [Suspect]
     Indication: DRUG USE FOR UNKNOWN INDICATION
     Route: 065
     Dates: start: 20080113, end: 20080121
  3. PIPERACILLIN SODIUM AND TAZOBACTAM SODIUM [Suspect]
     Indication: DRUG USE FOR UNKNOWN INDICATION
     Route: 065
     Dates: start: 20080115, end: 20080121
  4. TAVANIC [Suspect]
     Indication: DRUG USE FOR UNKNOWN INDICATION
     Route: 065
     Dates: start: 20080113, end: 20080121
  5. VANCOMYCIN [Suspect]
     Indication: DRUG USE FOR UNKNOWN INDICATION
     Route: 065
     Dates: start: 20080119, end: 20080121
  6. SOLUPSAN [Concomitant]
     Indication: DRUG USE FOR UNKNOWN INDICATION
     Route: 065
  7. TENORMIN [Concomitant]
     Indication: DRUG USE FOR UNKNOWN INDICATION
     Route: 065
  8. ELISOR [Concomitant]
     Indication: DRUG USE FOR UNKNOWN INDICATION
     Route: 065

REACTIONS (9)
  - BLOOD BILIRUBIN INCREASED [None]
  - CARDIAC DISORDER [None]
  - CHOLELITHIASIS [None]
  - HYPOVENTILATION [None]
  - JAUNDICE CHOLESTATIC [None]
  - LABILE BLOOD PRESSURE [None]
  - LUNG DISORDER [None]
  - MIXED LIVER INJURY [None]
  - SINUS ARREST [None]
